FAERS Safety Report 5075294-2 (Version None)
Quarter: 2006Q3

REPORT INFORMATION
  Report Type: 
  Country: None (occurrence: None)
  Receive Date: 20060809
  Receipt Date: 20060113
  Transmission Date: 20061208
  Serious: No
  Sender: FDA-Public Use
  Company Number: US-AMGEN-US164879

PATIENT
  Sex: Male
  Weight: 65 kg

DRUGS (8)
  1. EPOGEN [Suspect]
     Indication: DIALYSIS
     Route: 042
  2. CALCIUM CARBONATE [Concomitant]
     Dates: start: 20051201
  3. GLIPIZIDE [Concomitant]
  4. METOPROLOL TARTRATE [Concomitant]
  5. NEPHRO-VITE [Concomitant]
     Route: 048
  6. QUININE SULFATE [Concomitant]
  7. RENAGEL [Concomitant]
  8. SIMVASTATIN [Concomitant]

REACTIONS (1)
  - THERAPEUTIC RESPONSE DECREASED [None]
